FAERS Safety Report 15953014 (Version 1)
Quarter: 2019Q1

REPORT INFORMATION
  Report Type: Spontaneous
  Country: NL (occurrence: NL)
  Receive Date: 20190211
  Receipt Date: 20190211
  Transmission Date: 20190417
  Serious: No
  Sender: FDA-Public Use
  Company Number: NL-TEVA-547254ISR

PATIENT
  Age: 56 Year
  Sex: Female
  Weight: 67 kg

DRUGS (1)
  1. PAROXETINE PCH TABLET 10MG(ALS HCL ANHY) [Suspect]
     Active Substance: PAROXETINE
     Indication: PANIC DISORDER
     Dosage: 20 MILLIGRAM DAILY; ONCE A DAY 2 PIECES
     Route: 048
     Dates: start: 20150222

REACTIONS (2)
  - Throat irritation [Unknown]
  - Dysphagia [Unknown]

NARRATIVE: CASE EVENT DATE: 201503
